FAERS Safety Report 18445334 (Version 4)
Quarter: 2021Q4

REPORT INFORMATION
  Report Type: Report from Study
  Country: JP (occurrence: JP)
  Receive Date: 20201030
  Receipt Date: 20211008
  Transmission Date: 20220303
  Serious: Yes (Disabling)
  Sender: FDA-Public Use
  Company Number: JP-JNJFOC-20201044183

PATIENT
  Age: 65 Year
  Sex: Female
  Weight: 36.3 kg

DRUGS (30)
  1. BORTEZOMIB [Suspect]
     Active Substance: BORTEZOMIB
     Indication: Plasma cell myeloma
     Dosage: 1.3 MILLIGRAM/SQ. METER, QD
     Route: 065
     Dates: start: 20171227, end: 20171227
  2. DARZALEX [Suspect]
     Active Substance: DARATUMUMAB
     Indication: Plasma cell myeloma
     Dosage: 16 MILLIGRAM/KILOGRAM, QD
     Route: 041
     Dates: start: 20171227, end: 20171227
  3. DARZALEX [Suspect]
     Active Substance: DARATUMUMAB
     Dosage: 16 MILLIGRAM/KILOGRAM, QD
     Route: 041
     Dates: start: 20180105, end: 20180105
  4. DARZALEX [Suspect]
     Active Substance: DARATUMUMAB
     Dosage: 16 MILLIGRAM/KILOGRAM, QD
     Route: 041
     Dates: start: 20180214, end: 20180214
  5. DARZALEX [Suspect]
     Active Substance: DARATUMUMAB
     Dosage: 16 MILLIGRAM/KILOGRAM, QD
     Route: 041
     Dates: start: 20180227, end: 20180227
  6. DARZALEX [Suspect]
     Active Substance: DARATUMUMAB
     Dosage: 16 MILLIGRAM/KILOGRAM, QD
     Route: 041
     Dates: start: 20180313, end: 20180313
  7. DEXAMETHASONE [Concomitant]
     Active Substance: DEXAMETHASONE
     Indication: Plasma cell myeloma
     Dosage: 19.8 MILLIGRAM, QD
     Route: 065
     Dates: start: 20171227, end: 20171227
  8. DEXAMETHASONE [Concomitant]
     Active Substance: DEXAMETHASONE
     Dosage: 19.8 MILLIGRAM, QD
     Route: 065
     Dates: start: 20180105, end: 20180105
  9. DEXAMETHASONE [Concomitant]
     Active Substance: DEXAMETHASONE
     Dosage: 19.8 MILLIGRAM, QD
     Route: 065
     Dates: start: 20180119, end: 20180119
  10. DEXAMETHASONE [Concomitant]
     Active Substance: DEXAMETHASONE
     Dosage: 19.8 MILLIGRAM, QD
     Route: 065
     Dates: start: 20180125, end: 20180125
  11. DEXAMETHASONE [Concomitant]
     Active Substance: DEXAMETHASONE
     Dosage: 19.8 MILLIGRAM, QD
     Route: 065
     Dates: start: 20180202, end: 20180202
  12. DEXAMETHASONE [Concomitant]
     Active Substance: DEXAMETHASONE
     Dosage: 19.8 MILLIGRAM, QD
     Route: 065
     Dates: start: 20180205, end: 20180205
  13. DEXAMETHASONE [Concomitant]
     Active Substance: DEXAMETHASONE
     Dosage: 19.8 MILLIGRAM, QD
     Route: 065
     Dates: start: 20180209, end: 20180209
  14. DEXAMETHASONE [Concomitant]
     Active Substance: DEXAMETHASONE
     Dosage: 19.8 MILLIGRAM, QD
     Route: 065
     Dates: start: 20180213, end: 20180214
  15. DEXAMETHASONE [Concomitant]
     Active Substance: DEXAMETHASONE
     Dosage: 19.8 MILLIGRAM, QD
     Route: 065
     Dates: start: 20180220, end: 20180220
  16. DEXAMETHASONE [Concomitant]
     Active Substance: DEXAMETHASONE
     Dosage: 19.8 MILLIGRAM, QD
     Route: 065
     Dates: start: 20180226, end: 20180227
  17. DEXAMETHASONE [Concomitant]
     Active Substance: DEXAMETHASONE
     Dosage: 19.8 MILLIGRAM, QD
     Route: 065
     Dates: start: 20180306, end: 20180306
  18. DEXAMETHASONE [Concomitant]
     Active Substance: DEXAMETHASONE
     Dosage: 19.8 MILLIGRAM, QD
     Route: 065
     Dates: start: 20180312, end: 20180313
  19. DEXAMETHASONE [Concomitant]
     Active Substance: DEXAMETHASONE
     Dosage: 19.8 MILLIGRAM, QD
     Route: 065
     Dates: start: 20180320, end: 20180320
  20. SOLU-CORTEF [Concomitant]
     Active Substance: HYDROCORTISONE SODIUM SUCCINATE
     Indication: Pyrexia
     Dosage: 100 MILLIGRAM, QD
     Route: 065
     Dates: start: 20171227, end: 20171227
  21. PLATELETS [Concomitant]
     Active Substance: HUMAN PLATELET, ALLOGENIC
     Indication: Platelet count decreased
     Dosage: 10 INTERNATIONAL UNIT, QD
     Route: 065
     Dates: start: 20180117, end: 20180117
  22. PLATELETS [Concomitant]
     Active Substance: HUMAN PLATELET, ALLOGENIC
     Dosage: 10 INTERNATIONAL UNIT, QD
     Route: 065
     Dates: start: 20180122, end: 20180122
  23. PLATELETS [Concomitant]
     Active Substance: HUMAN PLATELET, ALLOGENIC
     Dosage: 10 INTERNATIONAL UNIT, QD
     Route: 065
     Dates: start: 20180124, end: 20180124
  24. PLATELETS [Concomitant]
     Active Substance: HUMAN PLATELET, ALLOGENIC
     Dosage: 10 INTERNATIONAL UNIT, QD
     Route: 065
     Dates: start: 20180126, end: 20180126
  25. PLATELETS [Concomitant]
     Active Substance: HUMAN PLATELET, ALLOGENIC
     Dosage: 10 INTERNATIONAL UNIT, QD
     Route: 065
     Dates: start: 20180131, end: 20180131
  26. PLATELETS [Concomitant]
     Active Substance: HUMAN PLATELET, ALLOGENIC
     Dosage: 10 INTERNATIONAL UNIT, QD
     Route: 065
     Dates: start: 20180203, end: 20180203
  27. PLATELETS [Concomitant]
     Active Substance: HUMAN PLATELET, ALLOGENIC
     Dosage: 10 INTERNATIONAL UNIT, QD
     Route: 065
     Dates: start: 20180207, end: 20180207
  28. PLATELETS [Concomitant]
     Active Substance: HUMAN PLATELET, ALLOGENIC
     Dosage: 10 INTERNATIONAL UNIT, QD
     Route: 065
     Dates: start: 20180213, end: 20180213
  29. PLATELETS [Concomitant]
     Active Substance: HUMAN PLATELET, ALLOGENIC
     Dosage: 10 INTERNATIONAL UNIT, QD
     Route: 065
     Dates: start: 20180217, end: 20180217
  30. PLATELETS [Concomitant]
     Active Substance: HUMAN PLATELET, ALLOGENIC
     Dosage: 10 INTERNATIONAL UNIT, QD
     Route: 065
     Dates: start: 20180320, end: 20180320

REACTIONS (3)
  - Infusion related reaction [Recovered/Resolved]
  - Pyrexia [Recovered/Resolved]
  - Platelet count decreased [Not Recovered/Not Resolved]

NARRATIVE: CASE EVENT DATE: 20171227
